FAERS Safety Report 4923679-4 (Version None)
Quarter: 2006Q1

REPORT INFORMATION
  Report Type: 
  Country: None (occurrence: None)
  Receive Date: 20060227
  Receipt Date: 20050421
  Transmission Date: 20060701
  Serious: Yes (Hospitalization)
  Sender: FDA-Public Use
  Company Number: US-MERCK-0504USA04256

PATIENT
  Age: 53 Year
  Sex: Female
  Weight: 68 kg

DRUGS (4)
  1. VIOXX [Suspect]
     Indication: PAIN IN EXTREMITY
     Route: 048
     Dates: start: 20020101, end: 20040101
  2. CLARITIN [Concomitant]
     Route: 065
  3. KLONOPIN [Concomitant]
     Route: 065
  4. ESTRATEST [Concomitant]
     Route: 065
     Dates: start: 19900101

REACTIONS (4)
  - BLOOD CHOLESTEROL INCREASED [None]
  - CEREBROVASCULAR ACCIDENT [None]
  - DIVERTICULITIS [None]
  - INJURY [None]
